FAERS Safety Report 18792555 (Version 3)
Quarter: 2021Q1

REPORT INFORMATION
  Report Type: Spontaneous
  Country: US (occurrence: US)
  Receive Date: 20210127
  Receipt Date: 20210319
  Transmission Date: 20210419
  Serious: Yes (Other)
  Sender: FDA-Public Use
  Company Number: US-MICRO LABS LIMITED-ML2021-00137

PATIENT
  Sex: Male

DRUGS (1)
  1. RASAGILINE. [Suspect]
     Active Substance: RASAGILINE
     Indication: PARKINSON^S DISEASE

REACTIONS (3)
  - Foreign body in throat [Unknown]
  - Product use complaint [Unknown]
  - Product physical issue [Unknown]
